FAERS Safety Report 5576032-7 (Version None)
Quarter: 2007Q4

REPORT INFORMATION
  Report Type: 
  Country: None (occurrence: None)
  Receive Date: 20071228
  Receipt Date: 20071120
  Transmission Date: 20080405
  Serious: No
  Sender: FDA-Public Use
  Company Number: A0687576A

PATIENT
  Age: 88 Year
  Sex: Female

DRUGS (11)
  1. ADVAIR DISKUS 100/50 [Suspect]
     Indication: CHRONIC OBSTRUCTIVE PULMONARY DISEASE
     Route: 055
     Dates: start: 20070801
  2. FLOVENT [Suspect]
     Indication: EMPHYSEMA
     Route: 055
     Dates: start: 20050101, end: 20070801
  3. CARDIZEM CD [Concomitant]
  4. ISORDIL [Concomitant]
  5. LASIX [Concomitant]
  6. POTASSIUM CHLORIDE [Concomitant]
  7. SINGULAIR [Concomitant]
  8. CORAL CALCIUM [Concomitant]
  9. ZANTAC [Concomitant]
  10. DUONEB [Concomitant]
  11. ALBUTEROL [Concomitant]

REACTIONS (3)
  - DRUG INEFFECTIVE [None]
  - DYSPNOEA [None]
  - PHARMACEUTICAL PRODUCT COMPLAINT [None]
